FAERS Safety Report 7554226-9 (Version None)
Quarter: 2011Q2

REPORT INFORMATION
  Report Type: 
  Country: None (occurrence: None)
  Receive Date: 20110617
  Receipt Date: 20110613
  Transmission Date: 20111010
  Serious: No
  Sender: FDA-Public Use
  Company Number: US-PFIZER INC-2011129305

PATIENT
  Sex: Female
  Weight: 73 kg

DRUGS (5)
  1. ALLEGRA [Concomitant]
     Indication: HYPERSENSITIVITY
     Dosage: UNK
     Route: 048
  2. DEXILANT [Concomitant]
     Indication: GASTROOESOPHAGEAL REFLUX DISEASE
     Dosage: 60 MG, DAILY
     Route: 048
  3. ZOVIA 1/35E-21 [Concomitant]
     Indication: CONTRACEPTION
     Dosage: UNK
  4. PRISTIQ [Suspect]
     Indication: PANIC ATTACK
  5. PRISTIQ [Suspect]
     Indication: MAJOR DEPRESSION
     Dosage: 150 MG, DAILY
     Route: 048
     Dates: start: 20110101

REACTIONS (1)
  - BLOOD PRESSURE INCREASED [None]
